FAERS Safety Report 8198879 (Version 1)
Quarter: 2020Q3

REPORT INFORMATION
  Report Type: Spontaneous
  Country: JP (occurrence: None)
  Receive Date: 20111013
  Receipt Date: 20111013
  Transmission Date: 20201104
  Serious: Yes (Hospitalization, Disabling, Other)
  Sender: FDA-Public Use
  Company Number: 2011MA014521

PATIENT
  Age: 20 Year
  Sex: Male
  Weight: 57 kg

DRUGS (2)
  1. METHYLCOBALAMIN. [Suspect]
     Active Substance: METHYLCOBALAMIN
     Indication: PRODUCT USED FOR UNKNOWN INDICATION
     Dosage: 1.5 MG
  2. PHENYTOIN. [Suspect]
     Active Substance: PHENYTOIN
     Indication: SEIZURE
     Dosage: 250 MG

REACTIONS (16)
  - Paraplegia [None]
  - Dysarthria [None]
  - Anticonvulsant drug level below therapeutic [None]
  - Memory impairment [None]
  - Toxicity to various agents [None]
  - Incorrect dose administered [None]
  - Guillain-Barre syndrome [None]
  - Methylenetetrahydrofolate reductase deficiency [None]
  - Seizure [None]
  - Dysstasia [None]
  - Areflexia [None]
  - Visual impairment [None]
  - Somnolence [None]
  - Leukoencephalopathy [None]
  - Nystagmus [None]
  - Speech disorder [None]
